FAERS Safety Report 8539697 (Version 2)
Quarter: 2012Q4

REPORT INFORMATION
  Report Type: 
  Country: US (occurrence: US)
  Receive Date: 20120502
  Receipt Date: 20120830
  Transmission Date: 20130627
  Serious: Yes (Other)
  Sender: FDA-Public Use
  Company Number: US-BAYER-2012-041863

PATIENT
  Age: 19 Year
  Sex: Female
  Weight: 58.96 kg

DRUGS (12)
  1. YAZ [Suspect]
     Indication: CONTRACEPTION
     Dosage: UNK
     Dates: start: 20100415, end: 201007
  2. DICYCLOMINE [Concomitant]
     Indication: ABDOMINAL PAIN
     Dosage: 20 mg, 1 tablet QID, as needed
     Route: 048
     Dates: start: 20100509
  3. IMODIUM A-D [Concomitant]
     Indication: DIARRHOEA
     Dosage: 2 mg, 1 tablet every 6 hours, PRN
     Route: 048
     Dates: start: 20100509
  4. FLUCONAZOLE [Concomitant]
     Indication: VAGINITIS BACTERIAL
     Dosage: 150 mg, UNK
     Dates: start: 20100409, end: 20100422
  5. FLUCONAZOLE [Concomitant]
     Indication: VAGINITIS BACTERIAL
     Dosage: 150 mg, UNK
     Dates: start: 20100415
  6. METROGEL [Concomitant]
     Indication: VAGINITIS BACTERIAL
     Dosage: 0.75 %, UNK
     Dates: start: 20100422
  7. IBUPROFEN [Concomitant]
     Indication: PAIN
     Dosage: UNK UNK, PRN
     Route: 048
     Dates: start: 20100515
  8. BENTYL [Concomitant]
     Indication: ABDOMINAL PAIN
     Dosage: 20 mg, QID, PRN
     Route: 048
     Dates: start: 20100509
  9. GARDASIL [Concomitant]
     Dosage: UNK
     Route: 030
     Dates: start: 20100312
  10. HYDROCODONE W/ACETAMINOPHEN [Concomitant]
     Dosage: 5-500 mg, UNK
     Dates: start: 20100520
  11. MIRENA [Concomitant]
  12. DIFLUCAN [Concomitant]

REACTIONS (5)
  - Cholelithiasis [None]
  - Injury [None]
  - Pain [None]
  - Abdominal pain [None]
  - Cholecystitis chronic [None]
